FAERS Safety Report 18882086 (Version 1)
Quarter: 2021Q1

REPORT INFORMATION
  Report Type: Spontaneous
  Country: US (occurrence: US)
  Receive Date: 20210212
  Receipt Date: 20210212
  Transmission Date: 20210420
  Serious: No
  Sender: FDA-Public Use
  Company Number: US-SUN PHARMACEUTICAL INDUSTRIES LTD-2020R1-265715

PATIENT
  Sex: Female

DRUGS (2)
  1. ODOMZO [Suspect]
     Active Substance: SONIDEGIB
     Indication: PRODUCT USED FOR UNKNOWN INDICATION
     Dosage: UNK(EVERY OTHER DAY)
     Route: 065
  2. VERAPAMIL [Suspect]
     Active Substance: VERAPAMIL HYDROCHLORIDE
     Indication: PRODUCT USED FOR UNKNOWN INDICATION
     Dosage: UNK, DAILY
     Route: 065

REACTIONS (1)
  - Weight decreased [Unknown]
